FAERS Safety Report 4263766-X (Version None)
Quarter: 2004Q1

REPORT INFORMATION
  Report Type: 
  Country: None (occurrence: None)
  Receive Date: 20040102
  Receipt Date: 20031218
  Transmission Date: 20041129
  Serious: Yes (Other)
  Sender: FDA-Public Use
  Company Number: US_031299570

PATIENT
  Sex: Female

DRUGS (2)
  1. HUMALOG [Suspect]
     Dates: start: 19980101
  2. INSULIN GLARGINE [Concomitant]

REACTIONS (5)
  - BLOOD GLUCOSE DECREASED [None]
  - LOSS OF CONSCIOUSNESS [None]
  - PHARMACEUTICAL PRODUCT COMPLAINT [None]
  - TRANSPLANT [None]
  - TRISMUS [None]
